FAERS Safety Report 5606608-X (Version None)
Quarter: 2008Q1

REPORT INFORMATION
  Report Type: 
  Country: None (occurrence: None)
  Receive Date: 20080129
  Receipt Date: 20080117
  Transmission Date: 20080703
  Serious: Yes (Hospitalization)
  Sender: FDA-Public Use
  Company Number: FR-SANOFI-SYNTHELABO-A02200800257

PATIENT
  Sex: Female

DRUGS (4)
  1. MNESIS [Suspect]
     Indication: PRIMARY CEREBELLAR DEGENERATION
     Route: 048
     Dates: start: 20030615
  2. DETENSIEL [Suspect]
     Indication: CARDIAC FAILURE
     Dosage: UNK
     Route: 048
  3. LANZOR [Suspect]
     Indication: DRUG USE FOR UNKNOWN INDICATION
     Route: 048
  4. XATRAL [Suspect]
     Indication: DRUG USE FOR UNKNOWN INDICATION
     Route: 048

REACTIONS (3)
  - DIABETES MELLITUS [None]
  - MENORRHAGIA [None]
  - MICROALBUMINURIA [None]
